FAERS Safety Report 9678395 (Version 2)
Quarter: 2013Q4

REPORT INFORMATION
  Report Type: Spontaneous
  Country: US (occurrence: US)
  Receive Date: 20131108
  Receipt Date: 20131108
  Transmission Date: 20140711
  Serious: No
  Sender: FDA-Public Use
  Company Number: US-JNJFOC-20120107051

PATIENT
  Age: 44 Year
  Sex: Female
  Weight: 86.18 kg

DRUGS (3)
  1. DURAGESIC [Suspect]
     Indication: PAIN
     Route: 062
     Dates: start: 20120117
  2. UNSPECIFIED BLOOD PRESSURE MEDS [Concomitant]
     Indication: BLOOD PRESSURE
     Route: 048
     Dates: start: 2009
  3. ALL OTHER THERAPEUTIC PRODUCTS [Concomitant]
     Indication: UTERINE LEIOMYOMA
     Route: 048
     Dates: start: 2009

REACTIONS (1)
  - Drug ineffective [Not Recovered/Not Resolved]
